FAERS Safety Report 18571026 (Version 1)
Quarter: 2020Q4

REPORT INFORMATION
  Report Type: Spontaneous
  Country: US (occurrence: US)
  Receive Date: 20201202
  Receipt Date: 20201202
  Transmission Date: 20210114
  Serious: No
  Sender: FDA-Public Use
  Company Number: US-NOVEN PHARMACEUTICALS, INC.-2020US004863

PATIENT
  Sex: Female
  Weight: 104.31 kg

DRUGS (7)
  1. MINIVELLE [Suspect]
     Active Substance: ESTRADIOL
     Indication: NIGHT SWEATS
  2. VITAMIN D NOS [Concomitant]
     Active Substance: VITAMIN D NOS
     Indication: VITAMIN D DEFICIENCY
     Dosage: 5000 IU, 1/WEEK
     Route: 048
     Dates: start: 2010
  3. MINIVELLE [Suspect]
     Active Substance: ESTRADIOL
     Indication: MENOPAUSAL SYMPTOMS
     Dosage: 0.025 MG, TWICE WEEKLY
     Route: 062
     Dates: end: 202001
  4. MINIVELLE [Suspect]
     Active Substance: ESTRADIOL
     Indication: SLEEP DISORDER
  5. LOSARTAN. [Concomitant]
     Active Substance: LOSARTAN
     Indication: BLOOD PRESSURE ABNORMAL
     Dosage: STRENGTH UNKNOWN, FREQUENCY-DAILY
     Route: 048
     Dates: start: 2010
  6. LEVOTHYROXINE. [Concomitant]
     Active Substance: LEVOTHYROXINE
     Indication: PRODUCT USED FOR UNKNOWN INDICATION
     Dosage: UNK, FREQUENCY-DAILY
     Route: 048
  7. EPIPEN [Concomitant]
     Active Substance: EPINEPHRINE
     Indication: HYPERSENSITIVITY
     Dosage: UNKNOWN
     Route: 065

REACTIONS (2)
  - Blood cholesterol increased [Unknown]
  - Blood triglycerides increased [Unknown]

NARRATIVE: CASE EVENT DATE: 2019
